FAERS Safety Report 22540583 (Version 1)
Quarter: 2023Q2

REPORT INFORMATION
  Report Type: Spontaneous
  Country: US (occurrence: US)
  Receive Date: 20230609
  Receipt Date: 20230609
  Transmission Date: 20230721
  Serious: Yes (Hospitalization, Other)
  Sender: FDA-Public Use
  Company Number: US-GLAXOSMITHKLINE-US2023079086

PATIENT

DRUGS (2)
  1. ADVAIR DISKUS [Suspect]
     Active Substance: FLUTICASONE PROPIONATE\SALMETEROL XINAFOATE
     Indication: Chronic obstructive pulmonary disease
     Dosage: 1 PUFF(S), BID (500/ 50 MCG USE 1 INHALATION BY MOUTH TWICE)
     Route: 048
     Dates: start: 202001
  2. SPIRIVA [Concomitant]
     Active Substance: TIOTROPIUM BROMIDE MONOHYDRATE
     Indication: Chronic obstructive pulmonary disease
     Dosage: 18 UG, QD
     Dates: start: 202001

REACTIONS (2)
  - Herpes zoster [Not Recovered/Not Resolved]
  - Kidney infection [Unknown]

NARRATIVE: CASE EVENT DATE: 20230301
